FAERS Safety Report 13260874 (Version 1)
Quarter: 2017Q1

REPORT INFORMATION
  Report Type: Not Available
  Country: US (occurrence: US)
  Receive Date: 20170222
  Receipt Date: 20170222
  Transmission Date: 20170428
  Serious: No
  Sender: FDA-Public Use
  Company Number: US-ANIPHARMA-2016-US-002925

PATIENT
  Age: 71 Year
  Sex: Female

DRUGS (2)
  1. IBUPROFEN (NON-SPECIFIC) [Suspect]
     Active Substance: IBUPROFEN
  2. LITHOBID [Suspect]
     Active Substance: LITHIUM CARBONATE
     Route: 065

REACTIONS (1)
  - Hypersensitivity [Unknown]
